FAERS Safety Report 11403154 (Version 1)
Quarter: 2015Q3

REPORT INFORMATION
  Report Type: Spontaneous
  Country: US (occurrence: None)
  Receive Date: 20150820
  Receipt Date: 20150820
  Transmission Date: 20151125
  Serious: No
  Sender: FDA-Public Use
  Company Number: None

PATIENT
  Sex: Female
  Weight: 51.62 kg

DRUGS (20)
  1. FLEET GLYCERIN SUPPOSITORIES [Concomitant]
  2. FLEET ENAMA [Concomitant]
  3. VITIMAN D [Concomitant]
  4. TEMAZEPAM. [Concomitant]
     Active Substance: TEMAZEPAM
  5. LOSARTON POT [Concomitant]
  6. NEXIUM [Concomitant]
     Active Substance: ESOMEPRAZOLE MAGNESIUM
  7. ALPRAZOLAM. [Concomitant]
     Active Substance: ALPRAZOLAM
  8. COREG [Concomitant]
     Active Substance: CARVEDILOL
  9. POTASSIUM [Concomitant]
     Active Substance: POTASSIUM
  10. VISTRIAL [Concomitant]
  11. STOOL SOFTNERS [Concomitant]
  12. INVOKANA [Suspect]
     Active Substance: CANAGLIFLOZIN
     Indication: DIABETES MELLITUS
     Route: 048
     Dates: start: 20141002, end: 20150518
  13. VITAMIN B12 [Concomitant]
     Active Substance: CYANOCOBALAMIN
  14. DIGOXIN. [Concomitant]
     Active Substance: DIGOXIN
  15. FLU SHOT [Concomitant]
     Active Substance: INFLUENZA VIRUS VACCINE
  16. LEVEMIR FLEX TOUCH PEN [Concomitant]
  17. LASIX [Concomitant]
     Active Substance: FUROSEMIDE
  18. SPRIRONLACT [Concomitant]
  19. ASPIRIN. [Concomitant]
     Active Substance: ASPIRIN
  20. BOOSTER SHOT [Concomitant]

REACTIONS (1)
  - Cystitis [None]
